FAERS Safety Report 5853387-7 (Version None)
Quarter: 2008Q3

REPORT INFORMATION
  Report Type: 
  Country: None (occurrence: None)
  Receive Date: 20080820
  Receipt Date: 20070904
  Transmission Date: 20090109
  Serious: Yes (Hospitalization)
  Sender: FDA-Public Use
  Company Number: US023932

PATIENT
  Age: 67 Year
  Sex: Female
  Weight: 66 kg

DRUGS (7)
  1. TRISENOX [Suspect]
     Indication: MYELODYSPLASTIC SYNDROME
     Dosage: UNK INTRAVENOUS DRIP
     Route: 041
     Dates: start: 20070825, end: 20070829
  2. TRISENOX [Suspect]
     Indication: MYELODYSPLASTIC SYNDROME
     Dosage: UNK INTRAVENOUS DRIP
     Route: 041
     Dates: start: 20070911
  3. AXAGON [Concomitant]
  4. SYLORIC [Concomitant]
  5. RAMIPRIL [Concomitant]
  6. GLIBOMET [Concomitant]
  7. INSULINE NPH [Concomitant]

REACTIONS (6)
  - ACUTE PROMYELOCYTIC LEUKAEMIA DIFFERENTIATION SYNDROME [None]
  - ATRIAL FIBRILLATION [None]
  - ELECTROCARDIOGRAM QT PROLONGED [None]
  - PLEURAL EFFUSION [None]
  - PNEUMONIA [None]
  - WEIGHT INCREASED [None]
